FAERS Safety Report 8406712-7 (Version None)
Quarter: 2012Q2

REPORT INFORMATION
  Report Type: 
  Country: None (occurrence: None)
  Receive Date: 20120604
  Receipt Date: 20120525
  Transmission Date: 20120825
  Serious: Yes (Hospitalization, Other)
  Sender: FDA-Public Use
  Company Number: US-PFIZER INC-2012127138

PATIENT
  Age: 68 Year
  Sex: Male

DRUGS (9)
  1. CELECOXIB [Suspect]
     Indication: GOUT
     Dosage: UNK
  2. SITAGLIPTIN [Concomitant]
     Dosage: UNK
  3. ACETYLSALICYLIC ACID [Concomitant]
     Dosage: UNK
  4. METOPROLOL [Concomitant]
     Dosage: UNK
  5. COLCHICINE [Suspect]
     Indication: GOUT
     Dosage: UNK
  6. RAMIPRIL [Concomitant]
     Dosage: UNK
  7. ATORVASTATIN [Concomitant]
     Dosage: UNK
  8. GLIPIZIDE [Concomitant]
     Dosage: UNK
  9. METFORMIN [Concomitant]
     Dosage: UNK

REACTIONS (8)
  - LOSS OF CONSCIOUSNESS [None]
  - DYSPNOEA [None]
  - SWOLLEN TONGUE [None]
  - CORONARY ARTERY THROMBOSIS [None]
  - ANAPHYLACTIC REACTION [None]
  - LIP SWELLING [None]
  - PRURITUS GENERALISED [None]
  - OEDEMA PERIPHERAL [None]
